FAERS Safety Report 25640466 (Version 3)
Quarter: 2025Q3

REPORT INFORMATION
  Report Type: Report from Study
  Country: CA (occurrence: CA)
  Receive Date: 20250804
  Receipt Date: 20250818
  Transmission Date: 20251020
  Serious: Yes (Other)
  Sender: ROCHE
  Company Number: CA-ROCHE-10000353349

PATIENT
  Age: 67 Year
  Sex: Male
  Weight: 77 kg

DRUGS (13)
  1. ACTEMRA [Suspect]
     Active Substance: TOCILIZUMAB
     Indication: Rheumatoid arthritis
     Dosage: DRUG DOSE FIRST ADMINISTERED IS UNKNOWN ?MOREDOSAGEINFO IS PIR NOT AVAILABLE
     Route: 042
     Dates: start: 20241218, end: 20250804
  2. CLONAZEPAM [Concomitant]
     Active Substance: CLONAZEPAM
  3. DELATESTRYL [Concomitant]
     Active Substance: TESTOSTERONE ENANTHATE
     Dosage: 1-TAB 2X DAILY.?200 MG/ML
  4. FOLIC ACID [Concomitant]
     Active Substance: FOLIC ACID
     Dosage: DRUG DOSE FIRST ADMINISTERED IS 5 MG MILLIGRAM(S)?MOREDOSAGEINFO IS 1 TAB ONCE A WEEK
     Route: 048
  5. LEFLUNOMIDE [Concomitant]
     Active Substance: LEFLUNOMIDE
     Dosage: DRUG DOSE FIRST ADMINISTERED IS 20 MG MILLIGRAM(S)?MOREDOSAGEINFO IS 1 TAB DAILY
  6. METHOTREXATE [Concomitant]
     Active Substance: METHOTREXATE
     Dosage: DRUG DOSE FIRST ADMINISTERED IS 2.5 MG MILLIGRAM(S)?MOREDOSAGEINFO IS TAKE 8 TABLETS ONCE A WEEK
     Route: 048
  7. MYRBETRIQ [Concomitant]
     Active Substance: MIRABEGRON
     Dosage: DRUG DOSE FIRST ADMINISTERED IS 50 MG MILLIGRAM(S)?MOREDOSAGEINFO IS 1 TAB A DAY
  8. PANTOPRAZOLE [Concomitant]
     Active Substance: PANTOPRAZOLE
     Dosage: DRUG DOSE FIRST ADMINISTERED IS 40 MG MILLIGRAM(S)?MOREDOSAGEINFO IS 1 TAB DAILY
     Route: 048
  9. ROSUVASTATIN [Concomitant]
     Active Substance: ROSUVASTATIN
  10. SERTRALINE [Concomitant]
     Active Substance: SERTRALINE HYDROCHLORIDE
  11. SOLIFENACIN [Concomitant]
     Active Substance: SOLIFENACIN
     Dosage: DRUG DOSE FIRST ADMINISTERED IS 10 MG MILLIGRAM(S)?MOREDOSAGEINFO IS 1-TAB 2X DAILY
     Route: 048
  12. SYNTHROID [Concomitant]
     Active Substance: LEVOTHYROXINE SODIUM
     Dosage: DRUG DOSE FIRST ADMINISTERED IS 75 MG MICROGRAM(S)?MOREDOSAGEINFO IS 1 TAB DAILY
  13. VALPROIC ACID [Concomitant]
     Active Substance: VALPROIC ACID

REACTIONS (4)
  - Joint swelling [Not Recovered/Not Resolved]
  - Arthritis [Not Recovered/Not Resolved]
  - Gait disturbance [Not Recovered/Not Resolved]
  - Limb mass [Not Recovered/Not Resolved]

NARRATIVE: CASE EVENT DATE: 20250701
